FAERS Safety Report 13228014 (Version 2)
Quarter: 2017Q1

REPORT INFORMATION
  Report Type: Report from Study
  Country: US (occurrence: US)
  Receive Date: 20170213
  Receipt Date: 20170307
  Transmission Date: 20170428
  Serious: Yes (Hospitalization)
  Sender: FDA-Public Use
  Company Number: US-ACTELION-A-US2017-149089

PATIENT
  Age: 77 Year
  Sex: Male
  Weight: 76.19 kg

DRUGS (5)
  1. VENTAVIS [Suspect]
     Active Substance: ILOPROST
     Indication: PULMONARY ARTERIAL HYPERTENSION
     Dosage: 5 MCG, 6-9X PER DAY
     Route: 055
     Dates: start: 20170117
  2. AMLODIPINE [Concomitant]
     Active Substance: AMLODIPINE BESYLATE
  3. ADCIRCA [Concomitant]
     Active Substance: TADALAFIL
  4. VENTAVIS [Suspect]
     Active Substance: ILOPROST
     Dosage: 5 MCG, 6-9X PER DAY
     Route: 055
     Dates: end: 20170202
  5. LETAIRIS [Concomitant]
     Active Substance: AMBRISENTAN

REACTIONS (11)
  - Fall [Unknown]
  - Vision blurred [Unknown]
  - Weight decreased [Unknown]
  - Spinal operation [Unknown]
  - Somnolence [Unknown]
  - Blood insulin abnormal [Unknown]
  - Spinal fracture [Unknown]
  - Dizziness [Unknown]
  - Asthenia [Unknown]
  - Decreased appetite [Unknown]
  - Headache [Unknown]

NARRATIVE: CASE EVENT DATE: 20170124
